FAERS Safety Report 7319371-1 (Version None)
Quarter: 2011Q1

REPORT INFORMATION
  Report Type: 
  Country: None (occurrence: None)
  Receive Date: 20110228
  Receipt Date: 20100222
  Transmission Date: 20110831
  Serious: Yes (Hospitalization)
  Sender: FDA-Public Use
  Company Number: A0845705A

PATIENT
  Age: 18 Year
  Sex: Female

DRUGS (1)
  1. LAMICTAL [Suspect]
     Route: 048
     Dates: start: 20100201, end: 20100201

REACTIONS (3)
  - STEVENS-JOHNSON SYNDROME [None]
  - RASH VESICULAR [None]
  - RASH [None]
